FAERS Safety Report 7503121-X (Version None)
Quarter: 2011Q2

REPORT INFORMATION
  Report Type: 
  Country: None (occurrence: None)
  Receive Date: 20110525
  Receipt Date: 20110523
  Transmission Date: 20111010
  Serious: Yes (Life-Threatening, Hospitalization, Other)
  Sender: FDA-Public Use
  Company Number: FR-PFIZER INC-2011109820

PATIENT
  Age: 91 Year
  Sex: Male

DRUGS (9)
  1. DIGOXIN [Suspect]
     Dosage: UNK
     Route: 048
  2. ALDALIX [Suspect]
     Dosage: 20MG/50MG
     Route: 048
  3. ATACAND [Suspect]
     Route: 048
  4. EPINITRIL [Concomitant]
     Dosage: UNK
     Route: 062
  5. FEBUXOSTAT [Concomitant]
     Dosage: 80 MG
     Route: 048
  6. INSPRA [Suspect]
     Route: 048
  7. LASIX [Concomitant]
     Dosage: 60 MG, 2X/DAY
     Route: 048
     Dates: start: 20101201
  8. AMLODIPINE BESYLATE [Suspect]
     Route: 048
  9. PREVISCAN [Concomitant]
     Dosage: 20 MG
     Route: 048

REACTIONS (4)
  - TOXICITY TO VARIOUS AGENTS [None]
  - HYPERKALAEMIA [None]
  - ARRHYTHMIA [None]
  - RENAL FAILURE ACUTE [None]
